FAERS Safety Report 11580001 (Version 9)
Quarter: 2023Q4

REPORT INFORMATION
  Report Type: Report from Study
  Country: US (occurrence: US)
  Receive Date: 20150930
  Receipt Date: 20231019
  Transmission Date: 20240110
  Serious: Yes (Other)
  Sender: FDA-Public Use
  Company Number: US-JAZZ-2015-US-014728

PATIENT
  Sex: Male
  Weight: 86.168 kg

DRUGS (4)
  1. XYREM [Suspect]
     Active Substance: SODIUM OXYBATE
     Indication: Narcolepsy
     Dosage: 4.5 GRAM, BID
     Route: 048
     Dates: start: 200210
  2. XYREM [Suspect]
     Active Substance: SODIUM OXYBATE
     Indication: Cataplexy
     Dosage: 3 GRAM, BID
     Route: 048
     Dates: start: 200210
  3. XYREM [Suspect]
     Active Substance: SODIUM OXYBATE
     Dosage: 4.5 GRAM, BID
     Route: 048
     Dates: end: 20220103
  4. SPIRIVA [Suspect]
     Active Substance: TIOTROPIUM BROMIDE MONOHYDRATE
     Indication: Chronic obstructive pulmonary disease

REACTIONS (7)
  - Blood pressure increased [Recovering/Resolving]
  - Prostate cancer [Recovered/Resolved]
  - Hepatitis [Unknown]
  - Weight decreased [Unknown]
  - Decreased appetite [Unknown]
  - Chronic obstructive pulmonary disease [Unknown]
  - Sleep terror [Unknown]

NARRATIVE: CASE EVENT DATE: 20130101
